FAERS Safety Report 5598001-3 (Version None)
Quarter: 2008Q1

REPORT INFORMATION
  Report Type: 
  Country: None (occurrence: None)
  Receive Date: 20080122
  Receipt Date: 20080110
  Transmission Date: 20080703
  Serious: Yes (Hospitalization)
  Sender: FDA-Public Use
  Company Number: FR-JNJFOC-20080102147

PATIENT
  Age: 92 Year
  Sex: Female

DRUGS (3)
  1. OFLOCET [Suspect]
     Indication: DIVERTICULUM
     Route: 048
  2. FLAGYL [Suspect]
     Indication: DIVERTICULUM
     Route: 048
  3. ANTICOAGULANT [Interacting]
     Indication: DRUG USE FOR UNKNOWN INDICATION
     Route: 048

REACTIONS (5)
  - AGITATION [None]
  - CONFUSIONAL STATE [None]
  - DRUG INTERACTION [None]
  - EPILEPSY [None]
  - INTERNATIONAL NORMALISED RATIO INCREASED [None]
